FAERS Safety Report 4618602-6 (Version None)
Quarter: 2005Q1

REPORT INFORMATION
  Report Type: 
  Country: None (occurrence: None)
  Receive Date: 20050323
  Receipt Date: 20050317
  Transmission Date: 20050727
  Serious: Yes (Hospitalization)
  Sender: FDA-Public Use
  Company Number: A044-002-005413

PATIENT
  Age: 77 Year
  Sex: Male
  Weight: 69 kg

DRUGS (8)
  1. ARICEPT [Suspect]
     Indication: DEMENTIA
     Dosage: 10 MG, 1 IN 1 D, ORAL
     Route: 048
     Dates: start: 20030101
  2. PREVISCAN 20 (FLUINDIONE) [Concomitant]
  3. TRIVASTAL (PIRIBEDIL) [Concomitant]
  4. PRETERAX (BI PREDONIUM) [Concomitant]
  5. HEMIGOXINE (DIGOXIN) [Concomitant]
  6. XATRAL (ALFUZOSIN) [Concomitant]
  7. TERCIAN (CYAMEMAZINE) [Concomitant]
  8. OMEPRAZOLE [Concomitant]

REACTIONS (4)
  - BILE DUCT STONE [None]
  - HEPATITIS [None]
  - MICROLITHIASIS [None]
  - NEPHROLITHIASIS [None]
